FAERS Safety Report 15568931 (Version 1)
Quarter: 2018Q4

REPORT INFORMATION
  Report Type: Spontaneous
  Country: IN (occurrence: IN)
  Receive Date: 20181031
  Receipt Date: 20181031
  Transmission Date: 20190205
  Serious: Yes (Life-Threatening, Hospitalization, Other)
  Sender: FDA-Public Use
  Company Number: IN-DRREDDYS-USA/IND/18/0105175

PATIENT
  Age: 28 Year
  Sex: Female

DRUGS (2)
  1. AMLODIPINE [Suspect]
     Active Substance: AMLODIPINE BESYLATE
     Indication: SUICIDE ATTEMPT
     Route: 065
  2. TELMISARTAN. [Suspect]
     Active Substance: TELMISARTAN
     Indication: SUICIDE ATTEMPT
     Route: 065

REACTIONS (6)
  - Intentional overdose [Recovering/Resolving]
  - Metabolic acidosis [Recovering/Resolving]
  - Vasoplegia syndrome [Recovering/Resolving]
  - Toxicity to various agents [Recovering/Resolving]
  - Shock [Recovering/Resolving]
  - Acute kidney injury [Recovering/Resolving]
